FAERS Safety Report 16021843 (Version 2)
Quarter: 2019Q1

REPORT INFORMATION
  Report Type: Spontaneous
  Country: GR (occurrence: GR)
  Receive Date: 20190301
  Receipt Date: 20190313
  Transmission Date: 20190418
  Serious: Yes (Other)
  Sender: FDA-Public Use
  Company Number: GR-UCBSA-2019007751

PATIENT
  Sex: Female

DRUGS (4)
  1. LEXOTANIL [Suspect]
     Active Substance: BROMAZEPAM
     Dosage: 0.25 DF, QD
  2. XOZAL [Suspect]
     Active Substance: LEVOCETIRIZINE
     Indication: PRURITUS
     Dosage: UNK
  3. LEXOTANIL [Suspect]
     Active Substance: BROMAZEPAM
     Dosage: 0.5 DF, QD
  4. LEXOTANIL [Suspect]
     Active Substance: BROMAZEPAM
     Indication: HERPES ZOSTER
     Dosage: 1.5 MG, ONCE DAILY (QD)

REACTIONS (1)
  - Bradycardia [Recovered/Resolved]
